FAERS Safety Report 6645116-4 (Version None)
Quarter: 2010Q1

REPORT INFORMATION
  Report Type: 
  Country: None (occurrence: None)
  Receive Date: 20100319
  Receipt Date: 20100319
  Transmission Date: 20100710
  Serious: Yes (Hospitalization)
  Sender: FDA-Public Use
  Company Number: None

PATIENT
  Sex: Male

DRUGS (12)
  1. ARIXTRA [Suspect]
     Indication: PULMONARY EMBOLISM
     Dosage: 7.5 MG DAILY SQ
     Route: 058
     Dates: start: 20100122, end: 20100318
  2. ZOSYN [Concomitant]
  3. CEFEPIME [Concomitant]
  4. ERBITUX [Concomitant]
  5. IRINOTECAN HCL [Concomitant]
  6. METHADONE [Concomitant]
  7. NEURONTIN [Concomitant]
  8. AMBIEN [Concomitant]
  9. VALIUM [Concomitant]
  10. DILAUDID [Concomitant]
  11. MICRO-K [Concomitant]
  12. TYLENOL-500 [Concomitant]

REACTIONS (8)
  - ABDOMINAL PAIN [None]
  - ANAEMIA [None]
  - ARTHRALGIA [None]
  - DIARRHOEA [None]
  - HYPOKALAEMIA [None]
  - NAUSEA [None]
  - URINARY TRACT INFECTION [None]
  - VOMITING [None]
